FAERS Safety Report 9372118 (Version 1)
Quarter: 2013Q2

REPORT INFORMATION
  Report Type: Spontaneous
  Country: GB (occurrence: None)
  Receive Date: 20130624
  Receipt Date: 20130624
  Transmission Date: 20140414
  Serious: Yes (Life-Threatening, Hospitalization)
  Sender: FDA-Public Use
  Company Number: 1762197

PATIENT
  Age: 54 Year
  Sex: Male
  Weight: 33.57 kg

DRUGS (1)
  1. OXALIPLATIN [Suspect]
     Indication: GASTROINTESTINAL CARCINOMA
     Route: 042
     Dates: start: 20130530, end: 20130530

REACTIONS (4)
  - Speech disorder [None]
  - Dysaesthesia pharynx [None]
  - Vomiting [None]
  - Bronchospasm [None]
